FAERS Safety Report 8775780 (Version 3)
Quarter: 2013Q1

REPORT INFORMATION
  Report Type: Spontaneous
  Country: JP (occurrence: JP)
  Receive Date: 20120907
  Receipt Date: 20130314
  Transmission Date: 20140127
  Serious: Yes (Other)
  Sender: FDA-Public Use
  Company Number: JP-PFIZER INC-2012219823

PATIENT
  Age: 66 Year
  Sex: Female
  Weight: 70 kg

DRUGS (4)
  1. EPIRUBICIN HCL [Suspect]
     Indication: BREAST CANCER
     Dosage: 100 MG, UNK
     Dates: start: 200411
  2. FLUOROURACIL [Suspect]
     Indication: BREAST CANCER
     Dosage: 875 MG, UNK
     Dates: start: 200411
  3. PACLITAXEL [Suspect]
     Indication: BREAST CANCER
     Dosage: 130 MG, UNK
     Dates: start: 200503
  4. CYCLOPHOSPHAMIDE [Suspect]
     Indication: BREAST CANCER
     Dosage: 850 MG, UNK
     Dates: start: 200411

REACTIONS (2)
  - Second primary malignancy [Unknown]
  - Squamous cell carcinoma [Unknown]
